FAERS Safety Report 17077001 (Version 1)
Quarter: 2019Q4

REPORT INFORMATION
  Report Type: Spontaneous
  Country: AU (occurrence: AU)
  Receive Date: 20191126
  Receipt Date: 20191126
  Transmission Date: 20200122
  Serious: Yes (Hospitalization, Other)
  Sender: FDA-Public Use
  Company Number: AU-AMERICAN REGENT INC-20181222

PATIENT
  Age: 73 Year
  Sex: Female

DRUGS (4)
  1. ENTECAVIR. [Concomitant]
     Active Substance: ENTECAVIR
     Indication: PRODUCT USED FOR UNKNOWN INDICATION
     Dosage: 0.5 MILLIGRAM, QD
     Route: 065
  2. DENOSUMAB [Concomitant]
     Active Substance: DENOSUMAB
     Indication: PRODUCT USED FOR UNKNOWN INDICATION
     Dosage: SINGLE INFUSION
     Route: 065
  3. FERINJECT [Suspect]
     Active Substance: FERRIC CARBOXYMALTOSE
     Indication: GASTRIC VARICES HAEMORRHAGE
     Dosage: 11 GRAM OVER 12 MONTHS
  4. SPIRONOLACTONE. [Concomitant]
     Active Substance: SPIRONOLACTONE
     Indication: PRODUCT USED FOR UNKNOWN INDICATION
     Dosage: 50 MILLIGRAM, QD
     Route: 065

REACTIONS (7)
  - Degenerative bone disease [Unknown]
  - Hypophosphataemia [Unknown]
  - Fractured sacrum [Unknown]
  - Product use in unapproved indication [Unknown]
  - Osteomalacia [Unknown]
  - Spinal fracture [Unknown]
  - Fatigue [Unknown]
